FAERS Safety Report 5429142-9 (Version None)
Quarter: 2007Q3

REPORT INFORMATION
  Report Type: 
  Country: None (occurrence: None)
  Receive Date: 20070829
  Receipt Date: 20070820
  Transmission Date: 20080115
  Serious: Yes (Disabling)
  Sender: FDA-Public Use
  Company Number: JP-ASTRAZENECA-2007AP05344

PATIENT
  Age: 33 Year
  Sex: Male

DRUGS (3)
  1. XYLOCAINE [Suspect]
     Route: 008
     Dates: start: 20070615
  2. ATROPINE [Concomitant]
     Dates: start: 20070615
  3. PENTAGIN [Concomitant]
     Dates: start: 20070615

REACTIONS (1)
  - CEREBRAL HAEMORRHAGE [None]
